FAERS Safety Report 17126790 (Version 1)
Quarter: 2019Q4

REPORT INFORMATION
  Report Type: Spontaneous
  Country: FR (occurrence: FR)
  Receive Date: 20191209
  Receipt Date: 20191209
  Transmission Date: 20200122
  Serious: Yes (Other)
  Sender: FDA-Public Use
  Company Number: FR-BRISTOL-MYERS SQUIBB COMPANY-BMS-2019-114716

PATIENT
  Age: 82 Year
  Sex: Female

DRUGS (1)
  1. HYDREA [Suspect]
     Active Substance: HYDROXYUREA
     Indication: THROMBOCYTOSIS
     Dosage: UNK
     Route: 065

REACTIONS (7)
  - Skin ulcer [Unknown]
  - Blood iron decreased [Unknown]
  - Loss of consciousness [Unknown]
  - Ageusia [Unknown]
  - Protein total decreased [Unknown]
  - Decreased appetite [Unknown]
  - Platelet count decreased [Unknown]
